FAERS Safety Report 8997951 (Version 1)
Quarter: 2013Q1

REPORT INFORMATION
  Report Type: Spontaneous
  Country: GB (occurrence: GB)
  Receive Date: 20130104
  Receipt Date: 20130104
  Transmission Date: 20140127
  Serious: Yes (Other)
  Sender: FDA-Public Use
  Company Number: GB-JNJFOC-20130100211

PATIENT
  Age: 26 Year
  Sex: Female

DRUGS (3)
  1. MICRONOR [Suspect]
     Indication: CONTRACEPTION
     Route: 048
  2. ISOTRETINOIN [Interacting]
     Indication: ACNE
     Route: 048
     Dates: start: 20121024, end: 20121118
  3. FLUOXETINE [Suspect]
     Indication: DEPRESSION
     Route: 065

REACTIONS (3)
  - Pregnancy on oral contraceptive [Unknown]
  - Exposure during pregnancy [Unknown]
  - Drug interaction [Unknown]
